FAERS Safety Report 6871061-5 (Version None)
Quarter: 2010Q3

REPORT INFORMATION
  Report Type: 
  Country: None (occurrence: None)
  Receive Date: 20100723
  Receipt Date: 20100715
  Transmission Date: 20110219
  Serious: Yes (Other)
  Sender: FDA-Public Use
  Company Number: US-ASTRAZENECA-2010SE33070

PATIENT
  Age: 28 Year
  Sex: Male

DRUGS (6)
  1. SEROQUEL [Suspect]
     Indication: BIPOLAR I DISORDER
     Dosage: NR
     Route: 048
  2. SEROQUEL [Suspect]
     Dosage: NR
     Route: 048
  3. PROPRANOLOL [Suspect]
     Route: 065
  4. LAMOTRIGINE [Suspect]
     Route: 065
  5. METFORMIN HCL [Suspect]
     Route: 065
  6. KLONOPIN [Suspect]
     Route: 065

REACTIONS (9)
  - BEDRIDDEN [None]
  - DEPRESSION SUICIDAL [None]
  - DRUG DOSE OMISSION [None]
  - INTENTIONAL SELF-INJURY [None]
  - LOSS OF EMPLOYMENT [None]
  - MANIA [None]
  - MENTAL DISORDER [None]
  - SUICIDAL IDEATION [None]
  - TENSION [None]
